FAERS Safety Report 23493373 (Version 1)
Quarter: 2024Q1

REPORT INFORMATION
  Report Type: Spontaneous
  Country: US (occurrence: US)
  Receive Date: 20240207
  Receipt Date: 20240207
  Transmission Date: 20240410
  Serious: No
  Sender: FDA-Public Use
  Company Number: US-ELI_LILLY_AND_COMPANY-US202305002851

PATIENT
  Age: 70 Year
  Sex: Female

DRUGS (3)
  1. TRULICITY [Suspect]
     Active Substance: DULAGLUTIDE
     Indication: Product used for unknown indication
     Dosage: UNK UNK, UNKNOWN
     Route: 065
  2. HUMALOG MIX75/25 [Concomitant]
     Active Substance: INSULIN LISPRO
     Indication: Product used for unknown indication
     Dosage: 50 U, DAILY (35 U IN THE MORNING, 15 U IN THE EVENING)
     Route: 065
  3. HUMALOG MIX75/25 [Concomitant]
     Active Substance: INSULIN LISPRO
     Dosage: 58 U, DAILY (20-30 U IN THE MORNING, 16-28 U IN THE EVENING)
     Route: 065

REACTIONS (1)
  - Drug hypersensitivity [Unknown]
